FAERS Safety Report 4805913-4 (Version None)
Quarter: 2005Q4

REPORT INFORMATION
  Report Type: 
  Country: None (occurrence: None)
  Receive Date: 20051019
  Receipt Date: 20051004
  Transmission Date: 20060501
  Serious: Yes (Hospitalization, Other)
  Sender: FDA-Public Use
  Company Number: USA0509109070

PATIENT
  Age: 63 Year
  Sex: Female

DRUGS (19)
  1. FORTEO [Suspect]
     Dosage: UNK
     Route: 065
     Dates: start: 20050524
  2. NORVASC [Concomitant]
  3. NEXIUM [Concomitant]
  4. LEVOTHYROXINE SODIUM [Concomitant]
  5. IMDUR [Concomitant]
  6. DARVOCET-N 100 [Concomitant]
  7. PARAFON FORTE [Concomitant]
  8. ATIVAN [Concomitant]
  9. ULTRAM [Concomitant]
  10. LACTAID (TILACTASE) [Concomitant]
  11. MYLANTA (CALCIUM CARBONATE) [Concomitant]
  12. CHLOR-TRIMETON [Concomitant]
  13. ASPIRIN [Concomitant]
  14. CRANBERRY [Concomitant]
  15. LESCOL [Concomitant]
  16. AMITRIPTYLINE HCL [Concomitant]
  17. STOOL SOFTENER (DOCUSATE SODIUM) [Concomitant]
  18. SALINE (SODIUM CHLORIDE) [Concomitant]
  19. COMBIVENT [Concomitant]

REACTIONS (13)
  - ANXIETY [None]
  - ASTHENIA [None]
  - ASTHMA [None]
  - CONDITION AGGRAVATED [None]
  - CONTUSION [None]
  - FALL [None]
  - HERNIA REPAIR [None]
  - LOSS OF CONSCIOUSNESS [None]
  - PHARMACEUTICAL PRODUCT COMPLAINT [None]
  - PNEUMONIA [None]
  - SINUSITIS [None]
  - TREMOR [None]
  - URINARY TRACT INFECTION [None]
